FAERS Safety Report 24148919 (Version 1)
Quarter: 2024Q3

REPORT INFORMATION
  Report Type: Spontaneous
  Country: JP (occurrence: JP)
  Receive Date: 20240729
  Receipt Date: 20240729
  Transmission Date: 20241016
  Serious: Yes (Hospitalization, Other)
  Sender: OTSUKA
  Company Number: JP-BRISTOL-MYERS SQUIBB COMPANY-14870240

PATIENT
  Age: 64 Year
  Sex: Female
  Weight: 45.2 kg

DRUGS (16)
  1. ABILIFY [Suspect]
     Active Substance: ARIPIPRAZOLE
     Indication: Schizophrenia
     Dosage: 27 MG, QD
     Route: 048
     Dates: start: 20071215, end: 200802
  2. ABILIFY [Suspect]
     Active Substance: ARIPIPRAZOLE
     Dosage: 3 MG, QD
     Route: 048
     Dates: start: 20070310
  3. ABILIFY [Suspect]
     Active Substance: ARIPIPRAZOLE
     Dosage: 9 MG, QD
     Route: 048
  4. ABILIFY [Suspect]
     Active Substance: ARIPIPRAZOLE
     Dosage: 15 MG, QD
     Route: 048
     Dates: start: 200704
  5. ABILIFY [Suspect]
     Active Substance: ARIPIPRAZOLE
     Dosage: 21 MG, QD
     Route: 048
     Dates: end: 200712
  6. ABILIFY [Suspect]
     Active Substance: ARIPIPRAZOLE
     Dosage: 24 MG, QD
     Route: 048
     Dates: end: 20071214
  7. ABILIFY [Suspect]
     Active Substance: ARIPIPRAZOLE
     Dosage: 25.5 MG, QD
     Route: 048
     Dates: start: 20080205, end: 20080207
  8. ABILIFY [Suspect]
     Active Substance: ARIPIPRAZOLE
     Dosage: 24 MG, QD
     Route: 048
     Dates: start: 20080208, end: 200802
  9. ABILIFY [Suspect]
     Active Substance: ARIPIPRAZOLE
     Dosage: 21 MG, QD
     Route: 048
     Dates: start: 200802, end: 200803
  10. CLONAZEPAM [Concomitant]
     Active Substance: CLONAZEPAM
     Indication: Product used for unknown indication
     Dosage: UNK
     Route: 048
     Dates: start: 200704, end: 200706
  11. CLONAZEPAM [Concomitant]
     Active Substance: CLONAZEPAM
     Dosage: 1 MG, QD
     Route: 048
     Dates: start: 200712, end: 20080204
  12. CLONAZEPAM [Concomitant]
     Active Substance: CLONAZEPAM
     Dosage: 5 MG, QD
     Route: 048
     Dates: start: 20080205, end: 200803
  13. LITHIUM CARBONATE [Concomitant]
     Active Substance: LITHIUM CARBONATE
     Indication: Discouragement
     Dosage: 500 MG, QD
     Route: 048
     Dates: start: 200607
  14. DIAZEPAM [Concomitant]
     Active Substance: DIAZEPAM
     Indication: Anxiety
     Dosage: 4 MG, QD
     Route: 065
     Dates: start: 200712, end: 200801
  15. DIAZEPAM [Concomitant]
     Active Substance: DIAZEPAM
     Indication: Agitation
     Dosage: 4 MG, QD
     Route: 065
     Dates: start: 20080205, end: 20080208
  16. SEROQUEL [Concomitant]
     Active Substance: QUETIAPINE FUMARATE
     Indication: Product used for unknown indication
     Dosage: UNK
     Route: 065

REACTIONS (9)
  - Abnormal behaviour [Recovering/Resolving]
  - Thinking abnormal [Recovering/Resolving]
  - Delusion [Recovering/Resolving]
  - Hallucination, olfactory [Recovered/Resolved]
  - Hallucination, auditory [Recovering/Resolving]
  - Catatonia [Recovering/Resolving]
  - Irritability [Recovering/Resolving]
  - Poriomania [Recovering/Resolving]
  - Aggression [Recovered/Resolved]

NARRATIVE: CASE EVENT DATE: 20080105
